FAERS Safety Report 5871219-8 (Version None)
Quarter: 2008Q3

REPORT INFORMATION
  Report Type: 
  Country: None (occurrence: None)
  Receive Date: 20080829
  Receipt Date: 20071105
  Transmission Date: 20090109
  Serious: Yes (Hospitalization)
  Sender: FDA-Public Use
  Company Number: 2007-01066FE

PATIENT
  Age: 36 Year
  Sex: Male

DRUGS (3)
  1. LH-RH ( ) (GONADORELIN) [Suspect]
     Indication: DIAGNOSTIC PROCEDURE
     Dosage: 0.1 MG ONCE
     Route: 042
  2. TRH (TRH) (PROTIRELIN) [Suspect]
     Indication: DIAGNOSTIC PROCEDURE
     Dosage: 0.5 MG ONCE
     Route: 042
  3. INSULIN ( ) (INSULIN) [Suspect]
     Indication: DIAGNOSTIC PROCEDURE
     Route: 042

REACTIONS (1)
  - PITUITARY HAEMORRHAGE [None]
